FAERS Safety Report 6397082-7 (Version None)
Quarter: 2009Q4

REPORT INFORMATION
  Report Type: 
  Country: None (occurrence: None)
  Receive Date: 20091012
  Receipt Date: 20091001
  Transmission Date: 20100525
  Serious: Yes (Other)
  Sender: FDA-Public Use
  Company Number: FI-JNJFOC-20090205795

PATIENT
  Age: 34 Year
  Sex: Female

DRUGS (6)
  1. REMICADE [Suspect]
     Route: 042
     Dates: start: 20010101, end: 20090825
  2. REMICADE [Suspect]
     Route: 042
     Dates: start: 20010101, end: 20090825
  3. REMICADE [Suspect]
     Route: 042
     Dates: start: 20010101, end: 20090825
  4. REMICADE [Suspect]
     Route: 042
     Dates: start: 20010101, end: 20090825
  5. REMICADE [Suspect]
     Indication: RHEUMATOID ARTHRITIS
     Route: 042
     Dates: start: 20010101, end: 20090825
  6. ALBETOL [Concomitant]
     Indication: HYPERTENSION

REACTIONS (2)
  - ARTHRODESIS [None]
  - DRUG EXPOSURE DURING PREGNANCY [None]
